FAERS Safety Report 15279112 (Version 1)
Quarter: 2018Q3

REPORT INFORMATION
  Report Type: Spontaneous
  Country: BR (occurrence: BR)
  Receive Date: 20180815
  Receipt Date: 20180815
  Transmission Date: 20181010
  Serious: Yes (Death, Hospitalization, Other)
  Sender: FDA-Public Use
  Company Number: BR-AMGEN-BRASP2018110961

PATIENT
  Age: 41 Year
  Sex: Female

DRUGS (12)
  1. PEGFILGRASTIM [Suspect]
     Active Substance: PEGFILGRASTIM
     Indication: PRODUCT USED FOR UNKNOWN INDICATION
     Dosage: UNK
     Route: 065
     Dates: start: 20161007
  2. NAVELBINE [Concomitant]
     Active Substance: VINORELBINE TARTRATE
     Indication: INVASIVE DUCTAL BREAST CARCINOMA
     Dosage: UNK ( 3 ORDERS)
     Dates: start: 20171027, end: 20171110
  3. ADRIAMYCIN [Concomitant]
     Active Substance: DOXORUBICIN HYDROCHLORIDE
     Dosage: UNK UNK, Q3WK
     Dates: start: 20161117, end: 20161209
  4. ADRIAMYCIN [Concomitant]
     Active Substance: DOXORUBICIN HYDROCHLORIDE
     Indication: INVASIVE DUCTAL BREAST CARCINOMA
     Dosage: UNK UNK, CYCLICAL (DOSE DENSE)
     Dates: start: 20161007
  5. TAXOL [Concomitant]
     Active Substance: PACLITAXEL
     Indication: INVASIVE DUCTAL BREAST CARCINOMA
     Dosage: UNK UNK, QWK
     Dates: start: 2016
  6. PACLITAXEL. [Concomitant]
     Active Substance: PACLITAXEL
     Indication: INVASIVE DUCTAL BREAST CARCINOMA
     Dosage: UNK UNK, QWK (13 APPLICATIONS)
     Dates: start: 20170120, end: 20180616
  7. BEVACIZUMAB. [Concomitant]
     Active Substance: BEVACIZUMAB
     Indication: INVASIVE DUCTAL BREAST CARCINOMA
     Dosage: UNK UNK, QWK (13 APPLICATIONS)
     Dates: start: 20170120, end: 20180616
  8. GEMZAR [Concomitant]
     Active Substance: GEMCITABINE HYDROCHLORIDE
     Indication: INVASIVE DUCTAL BREAST CARCINOMA
     Dosage: UNK (2 CYCLES)
     Dates: start: 20170707, end: 20170804
  9. CYTOXAN [Concomitant]
     Active Substance: CYCLOPHOSPHAMIDE
     Indication: INVASIVE DUCTAL BREAST CARCINOMA
     Dosage: UNK UNK, CYCLICAL (DOSE DENSE)
     Dates: start: 20161007
  10. CYTOXAN [Concomitant]
     Active Substance: CYCLOPHOSPHAMIDE
     Dosage: UNK UNK, Q3WK
     Dates: start: 20161117, end: 20161209
  11. ERIBULIN [Concomitant]
     Active Substance: ERIBULIN
     Indication: INVASIVE DUCTAL BREAST CARCINOMA
     Dosage: UNK (4 CYCLES)
     Dates: start: 20170825, end: 20171006
  12. CISPLATIN. [Concomitant]
     Active Substance: CISPLATIN
     Indication: INVASIVE DUCTAL BREAST CARCINOMA
     Dosage: UNK (2 CYCLES)
     Dates: start: 20170707, end: 20170804

REACTIONS (10)
  - Pain [Unknown]
  - Lymphadenopathy [Unknown]
  - Therapeutic response decreased [Unknown]
  - Malignant neoplasm progression [Unknown]
  - Tumour ulceration [Unknown]
  - Pulmonary embolism [Fatal]
  - Tumour haemorrhage [Unknown]
  - Dyspnoea exertional [Unknown]
  - Erythema [Unknown]
  - Lymphoedema [Unknown]

NARRATIVE: CASE EVENT DATE: 20170105
